FAERS Safety Report 12440690 (Version 1)
Quarter: 2016Q2

REPORT INFORMATION
  Report Type: Report from Study
  Country: CA (occurrence: CA)
  Receive Date: 20160606
  Receipt Date: 20160606
  Transmission Date: 20160815
  Serious: Yes (Death, Other)
  Sender: FDA-Public Use
  Company Number: CA-009507513-1606CAN001874

PATIENT
  Age: 55 Year
  Sex: Male

DRUGS (1)
  1. INTRON A [Suspect]
     Active Substance: INTERFERON ALFA-2B
     Indication: HAIRY CELL LEUKAEMIA RECURRENT
     Dosage: UNK
     Route: 042
     Dates: start: 20160424, end: 2016

REACTIONS (5)
  - Weight decreased [Unknown]
  - Pneumonia [Unknown]
  - Decreased appetite [Unknown]
  - Haemoptysis [Unknown]
  - Death [Fatal]

NARRATIVE: CASE EVENT DATE: 2016
